FAERS Safety Report 6168354-6 (Version None)
Quarter: 2009Q2

REPORT INFORMATION
  Report Type: 
  Country: None (occurrence: None)
  Receive Date: 20090427
  Receipt Date: 20090416
  Transmission Date: 20091009
  Serious: Yes (Hospitalization)
  Sender: FDA-Public Use
  Company Number: JP-NOVOPROD-286144

PATIENT
  Age: 13 Year
  Sex: Male
  Weight: 33 kg

DRUGS (2)
  1. NORDITROPIN NORDIFLEX [Suspect]
     Indication: GROWTH HORMONE DEFICIENCY
     Dosage: UNKNOWN
     Route: 058
     Dates: start: 20080407, end: 20090409
  2. GROWJECT [Concomitant]
     Indication: BODY HEIGHT BELOW NORMAL
     Dosage: .6 MG, QD (0.6 - 0.8 MG)
     Route: 058
     Dates: start: 20060704, end: 20080407

REACTIONS (1)
  - HYPERTHYROIDISM [None]
